FAERS Safety Report 6257913-8 (Version None)
Quarter: 2009Q3

REPORT INFORMATION
  Report Type: 
  Country: None (occurrence: None)
  Receive Date: 20090707
  Receipt Date: 20090624
  Transmission Date: 20100115
  Serious: Yes (Hospitalization)
  Sender: FDA-Public Use
  Company Number: JP-PFIZER INC-2009227087

PATIENT
  Age: 56 Year

DRUGS (2)
  1. AZULFIDINE [Suspect]
     Indication: RHEUMATOID ARTHRITIS
     Dosage: 500 MG, 2X/DAY
     Route: 048
     Dates: start: 20090508, end: 20090519
  2. MUCOSTA [Concomitant]
     Dosage: UNK
     Dates: start: 20090508, end: 20090520

REACTIONS (2)
  - ERYTHEMA MULTIFORME [None]
  - PYREXIA [None]
